FAERS Safety Report 7774754-0 (Version None)
Quarter: 2011Q3

REPORT INFORMATION
  Report Type: 
  Country: None (occurrence: None)
  Receive Date: 20110923
  Receipt Date: 20110920
  Transmission Date: 20111222
  Serious: Yes (Hospitalization)
  Sender: FDA-Public Use
  Company Number: CH-ROCHE-803568

PATIENT
  Sex: Female
  Weight: 42 kg

DRUGS (1)
  1. VEMURAFENIB [Suspect]
     Dosage: FREQUENCY: 2
     Route: 048
     Dates: start: 20110707, end: 20110919

REACTIONS (1)
  - GASTROINTESTINAL DISORDER [None]
